FAERS Safety Report 5914443-8 (Version None)
Quarter: 2008Q4

REPORT INFORMATION
  Report Type: 
  Country: None (occurrence: None)
  Receive Date: 20081009
  Receipt Date: 20080929
  Transmission Date: 20090506
  Serious: Yes (Congenital Anomaly, Other)
  Sender: FDA-Public Use
  Company Number: DE-GILEAD-2008-0018457

PATIENT
  Sex: Male
  Weight: 4.27 kg

DRUGS (8)
  1. TRUVADA [Suspect]
  2. AZT [Concomitant]
  3. SAQUINAVIR [Concomitant]
  4. RITONAVIR [Concomitant]
  5. FOLSAEURE [Concomitant]
  6. ZINC [Concomitant]
  7. SUCRALFAT [Concomitant]
  8. T-20 [Concomitant]

REACTIONS (2)
  - CARDIAC FAILURE [None]
  - TRISOMY 21 [None]
